FAERS Safety Report 6588163-3 (Version None)
Quarter: 2010Q1

REPORT INFORMATION
  Report Type: 
  Country: None (occurrence: None)
  Receive Date: 20100217
  Receipt Date: 20100217
  Transmission Date: 20100710
  Serious: Yes (Hospitalization)
  Sender: FDA-Public Use
  Company Number: None

PATIENT
  Age: 74 Year
  Sex: Male
  Weight: 74.5 kg

DRUGS (15)
  1. SUTENT [Suspect]
     Indication: TRANSITIONAL CELL CARCINOMA
     Dosage: 37.5 MG DAILY ORAL
     Route: 048
     Dates: start: 20100107
  2. LISINOPRIL [Concomitant]
  3. NORVASC [Concomitant]
  4. METOPROLOL TARTRATE [Concomitant]
  5. ISONIAZID [Concomitant]
  6. PROSCAR [Concomitant]
  7. LORATADINE [Concomitant]
  8. CRESTOR [Concomitant]
  9. ASPIRIN [Concomitant]
  10. FISH OIL [Concomitant]
  11. GARLIC CAP [Concomitant]
  12. FLOMAX [Concomitant]
  13. SYNTHROID [Concomitant]
  14. ALLOPURINOL [Concomitant]
  15. PERCOCET [Concomitant]

REACTIONS (1)
  - BLOOD PRESSURE INCREASED [None]
